FAERS Safety Report 6141349 (Version 4)
Quarter: 2018Q4

REPORT INFORMATION
  Report Type: Spontaneous
  Country: JP (occurrence: JP)
  Receive Date: 20061004
  Receipt Date: 20181206
  Transmission Date: 20190205
  Serious: Yes (Death, Hospitalization, Other)
  Sender: FDA-Public Use
  Company Number: PHBS2006JP15025

PATIENT
  Age: 42 Year
  Sex: Female
  Weight: 68 kg

DRUGS (12)
  1. PREDONINE [Concomitant]
     Active Substance: PREDNISOLONE
     Dosage: 40 MG, QD
     Route: 048
     Dates: start: 20060111
  2. HYDREA [Concomitant]
     Active Substance: HYDROXYUREA
     Indication: CHRONIC MYELOID LEUKAEMIA
     Dosage: 1500 MG, QD
     Route: 048
     Dates: start: 199805
  3. GLIVEC [Suspect]
     Active Substance: IMATINIB MESYLATE
     Indication: CHRONIC MYELOID LEUKAEMIA
     Dosage: 400 MG, UNK
     Route: 048
     Dates: start: 20011203, end: 200402
  4. GLIVEC [Suspect]
     Active Substance: IMATINIB MESYLATE
     Dosage: 800 MG, UNK
     Route: 048
     Dates: start: 20050628, end: 200510
  5. GLIVEC [Suspect]
     Active Substance: IMATINIB MESYLATE
     Dosage: 200 MG, UNK
     Route: 048
     Dates: start: 20060111
  6. GLIVEC [Suspect]
     Active Substance: IMATINIB MESYLATE
     Dosage: 400 MG, UNK
     Route: 048
     Dates: start: 200510, end: 20060110
  7. SUMIFERON [Concomitant]
     Active Substance: INTERFERON ALFA-N1
     Indication: CHRONIC MYELOID LEUKAEMIA
     Dosage: 600 IU, QD
     Route: 058
     Dates: start: 19980507, end: 200112
  8. PREDONINE [Concomitant]
     Active Substance: PREDNISOLONE
     Dosage: 15 MG, QD
     Route: 048
  9. GLIVEC [Suspect]
     Active Substance: IMATINIB MESYLATE
     Dosage: 600 MG, UNK
     Route: 048
     Dates: start: 200402, end: 20050628
  10. PREDONINE [Concomitant]
     Active Substance: PREDNISOLONE
     Indication: INTERSTITIAL LUNG DISEASE
     Dosage: 30 MG, QD
     Route: 048
     Dates: start: 20051007
  11. PREDONINE [Concomitant]
     Active Substance: PREDNISOLONE
     Dosage: 30 MG, QD
     Route: 048
  12. HYDREA [Concomitant]
     Active Substance: HYDROXYUREA
     Dosage: 1000 MG, QD
     Route: 048
     Dates: end: 200510

REACTIONS (15)
  - Oxygen saturation decreased [Fatal]
  - Infection [Unknown]
  - C-reactive protein increased [Unknown]
  - Altered state of consciousness [Fatal]
  - Abdominal pain upper [Fatal]
  - Dyspnoea [Fatal]
  - Thrombocytosis [Unknown]
  - Urine output decreased [Fatal]
  - Alveolar proteinosis [Fatal]
  - Chronic myeloid leukaemia [Unknown]
  - Arthralgia [Unknown]
  - Acute kidney injury [Fatal]
  - Hyperkalaemia [Fatal]
  - Arrhythmia [Fatal]
  - Pyrexia [Unknown]

NARRATIVE: CASE EVENT DATE: 200402
